FAERS Safety Report 5420453-X (Version None)
Quarter: 2007Q3

REPORT INFORMATION
  Report Type: 
  Country: None (occurrence: None)
  Receive Date: 20070821
  Receipt Date: 20070813
  Transmission Date: 20080115
  Serious: Yes (Other)
  Sender: FDA-Public Use
  Company Number: PHEH2007US11189

PATIENT
  Age: 49 Year

DRUGS (1)
  1. CLOZARIL [Suspect]

REACTIONS (2)
  - BREAST CANCER [None]
  - WHITE BLOOD CELL COUNT DECREASED [None]
